FAERS Safety Report 5876079-7 (Version None)
Quarter: 2008Q3

REPORT INFORMATION
  Report Type: 
  Country: None (occurrence: None)
  Receive Date: 20080905
  Receipt Date: 20080825
  Transmission Date: 20090109
  Serious: Yes (Other)
  Sender: FDA-Public Use
  Company Number: DE-1166420

PATIENT
  Age: 56 Year
  Sex: Male

DRUGS (18)
  1. MAXITROL [Suspect]
     Dosage: 5 TIMES DAILY OPTHALMIC
     Route: 047
     Dates: start: 20071106
  2. MAXITROL [Suspect]
     Dosage: QHS OPHTHALMIC
     Route: 047
  3. KANAMYCIN SULFATE [Suspect]
     Dosage: OPTHALMIC
     Route: 047
     Dates: start: 20071106
  4. KANAMYCIN SULFATE [Suspect]
     Dosage: OPTHALMIC
     Route: 047
     Dates: start: 20080129
  5. TOBRADEX [Suspect]
     Dosage: OPTHALMIC
     Route: 047
     Dates: start: 20080114
  6. TOBRADEX [Suspect]
     Dosage: OPTHALMIC
     Route: 047
     Dates: start: 20080130
  7. COSOPT (COSOPT) [Concomitant]
  8. BOTOX (BOTULINUM TOXIN TYPE A) [Concomitant]
  9. ACTIHAEMYL (BLOOD, CALF, DEPROT., LMW PORTION) [Concomitant]
  10. ACLO (ACECLOFENAC) [Concomitant]
  11. BORO-SCOPOL (HYOSCINE BORATE) [Concomitant]
  12. DEXAGEL 9DEXAMETHASONE SODIUM PHOSPHATE) [Concomitant]
  13. CORNEREGEL (DEXPANTHENOL) [Concomitant]
  14. TIMOPHTAL (TIMOLOL MALEATE) [Concomitant]
  15. FLOXAL (OFLOXACIN) [Concomitant]
  16. FLOXAL (OFLOXACIN) [Concomitant]
  17. OFTAQUIX (LEVOFLOXACIN) [Concomitant]
  18. XALATAN [Concomitant]

REACTIONS (4)
  - CORNEAL DEPOSITS [None]
  - CORNEAL EROSION [None]
  - INTRAOCULAR PRESSURE INCREASED [None]
  - NO THERAPEUTIC RESPONSE [None]
